FAERS Safety Report 14236614 (Version 3)
Quarter: 2020Q3

REPORT INFORMATION
  Report Type: Report from Study
  Country: US (occurrence: US)
  Receive Date: 20171129
  Receipt Date: 20171222
  Transmission Date: 20201105
  Serious: Yes (Hospitalization)
  Sender: FDA-Public Use
  Company Number: US-ASTRAZENECA-2017SF19012

PATIENT
  Age: 19589 Day
  Sex: Female
  Weight: 51.5 kg

DRUGS (3)
  1. TREMELIMUMAB. [Suspect]
     Active Substance: TREMELIMUMAB
     Indication: BREAST CANCER METASTATIC
     Route: 042
     Dates: start: 20171107
  2. DURVALUMAB. [Suspect]
     Active Substance: DURVALUMAB
     Indication: BREAST CANCER METASTATIC
     Route: 042
     Dates: start: 20171107
  3. FENTANYL. [Concomitant]
     Active Substance: FENTANYL
     Dosage: 75 MCG
     Route: 061

REACTIONS (3)
  - Urosepsis [Recovered/Resolved]
  - Pain [Not Recovered/Not Resolved]
  - Delirium [Recovered/Resolved]

NARRATIVE: CASE EVENT DATE: 20171119
